FAERS Safety Report 5131849-8 (Version None)
Quarter: 2006Q4

REPORT INFORMATION
  Report Type: 
  Country: None (occurrence: None)
  Receive Date: 20061016
  Receipt Date: 20061002
  Transmission Date: 20070319
  Serious: Yes (Death, Hospitalization)
  Sender: FDA-Public Use
  Company Number: 2006000618

PATIENT
  Age: 21 Month
  Sex: Male

DRUGS (1)
  1. ROXANOL 100 [Suspect]
     Dosage: ORAL
     Route: 048

REACTIONS (7)
  - ACCIDENTAL DRUG INTAKE BY CHILD [None]
  - BRAIN DEATH [None]
  - CYANOSIS [None]
  - DECEREBRATION [None]
  - HYPOTENSION [None]
  - LETHARGY [None]
  - MIOSIS [None]
